FAERS Safety Report 8784601 (Version 3)
Quarter: 2013Q2

REPORT INFORMATION
  Report Type: Spontaneous
  Country: US (occurrence: None)
  Receive Date: 20120830
  Receipt Date: 20130517
  Transmission Date: 20140414
  Serious: Yes (Hospitalization, Other)
  Sender: FDA-Public Use
  Company Number: 2011-000158

PATIENT
  Age: 63 Year
  Sex: Female
  Weight: 152.4 kg

DRUGS (29)
  1. ACTONEL (RISEDRONATE SODIUM) TABLET, 150MG [Suspect]
     Indication: OSTEOPOROSIS
     Dates: start: 20080625, end: 200912
  2. ACTONEL (RISEDRONATE SODIUM) TABLET, 150MG [Suspect]
     Indication: OSTEOPENIA
     Dates: start: 20080625, end: 200912
  3. ACTONEL [Suspect]
     Indication: OSTEOPOROSIS
     Dosage: 2 CONSECUTIVE DAYS A MONTH
     Route: 048
     Dates: start: 20070621, end: 20071129
  4. ACTONEL [Suspect]
     Dosage: 2 CONSECUTIVE DAYS A MONTH
     Route: 048
     Dates: start: 20070621, end: 20071129
  5. FOSAMAX (ALENDRONATE SODIUM) [Suspect]
     Indication: OSTEOPOROSIS
     Route: 048
     Dates: start: 19990719, end: 20020104
  6. FOSAMAX (ALENDRONATE SODIUM) [Suspect]
     Route: 048
     Dates: start: 19990719, end: 20020104
  7. FOSAMAX PLUS D [Suspect]
     Indication: OSTEOPOROSIS
     Dosage: 1 DF
     Dates: start: 20060703, end: 20070531
  8. FOSAMAX PLUS D [Suspect]
     Dosage: 1 DF
     Dates: start: 20060703, end: 20070531
  9. BONIVA [Suspect]
     Indication: OSTEOPOROSIS
     Dates: start: 20080324
  10. BONIVA [Suspect]
     Dates: start: 20080324
  11. ENBREL (ETANERCEPT) [Concomitant]
  12. PREDNISONE (PREDNISONE) [Concomitant]
  13. VITAMIN D /00318501/ (COLECALCIFEROL) [Concomitant]
  14. CELEBREX (CELECOXIB) [Concomitant]
  15. VICODIN (HYDROCODONE BITARTRATE, PARACETAMOL) [Concomitant]
  16. TYLENOL ARTHRITIS (PARACETAMOL) [Concomitant]
  17. NEXIUM /01479302/ (ESOMEPRAZOLE MAGNESIUM) [Concomitant]
  18. LIPITOR (ATORVASTATIN) [Concomitant]
  19. MICARDIS (TELMISARTAN) [Concomitant]
  20. POTASSIUM CHLORIDE (POTASSIUM CHLORIDE) [Concomitant]
  21. ELAVIL /00002202/ (AMITRIPTYLINE HYDROCHLORIDE) [Concomitant]
  22. SELENIUM (SELENIUM) [Concomitant]
  23. CENTRUM /00554501/ (MINERALS NOS, VITAMINS NOS) [Concomitant]
  24. OCUVITE / 01053801/ (ASCORBIC ACID, RETINOL, TOCOPHEROL) [Concomitant]
  25. CALCIUM D /00944201/ (CALCIUM CARBONATE, COLECALCIFEROL) [Concomitant]
  26. GINKO BILOBA (GINKGO BILOBA) [Concomitant]
  27. VITAMIN C WITH ROSE HIPS (ASCORBIC ACID) [Concomitant]
  28. ASPIRIN (ACETYLSALICYLIC ACID) [Concomitant]
  29. FLEXERIL /00428402/ (CYCLOBENZAPRINE HYDROCHLORIDE) [Concomitant]

REACTIONS (14)
  - Fracture displacement [None]
  - Pathological fracture [None]
  - Fall [None]
  - Pain in extremity [None]
  - Muscular weakness [None]
  - Limb asymmetry [None]
  - Device failure [None]
  - Bursitis [None]
  - Fracture nonunion [None]
  - Femur fracture [None]
  - Stress fracture [None]
  - Low turnover osteopathy [None]
  - Bone disorder [None]
  - Pain [None]
